FAERS Safety Report 13551085 (Version 1)
Quarter: 2017Q2

REPORT INFORMATION
  Report Type: Spontaneous
  Country: None (occurrence: US)
  Receive Date: 20170516
  Receipt Date: 20170516
  Transmission Date: 20170830
  Serious: Yes (Death, Hospitalization, Other)
  Sender: FDA-Public Use
  Company Number: US-VISTAPHARM, INC.-VER201705-000031

PATIENT
  Age: 49 Year
  Sex: Male

DRUGS (4)
  1. MELATONIN [Suspect]
     Active Substance: MELATONIN
  2. HYDROCODONE AND ACETAMINOPHEN [Suspect]
     Active Substance: ACETAMINOPHEN\HYDROCODONE
  3. ASPIRIN. [Suspect]
     Active Substance: ASPIRIN
  4. MUSCLE RELAXANT [Suspect]
     Active Substance: UNSPECIFIED INGREDIENT

REACTIONS (6)
  - Tachypnoea [Not Recovered/Not Resolved]
  - Tachycardia [Not Recovered/Not Resolved]
  - Overdose [None]
  - Agitation [Not Recovered/Not Resolved]
  - Seizure [None]
  - Confusional state [Not Recovered/Not Resolved]
